FAERS Safety Report 17564854 (Version 4)
Quarter: 2020Q2

REPORT INFORMATION
  Report Type: Spontaneous
  Country: US (occurrence: US)
  Receive Date: 20200320
  Receipt Date: 20200618
  Transmission Date: 20200713
  Serious: Yes (Disabling)
  Sender: FDA-Public Use
  Company Number: US-SA-2020SA070594

PATIENT

DRUGS (1)
  1. DUPIXENT [Suspect]
     Active Substance: DUPILUMAB
     Indication: DERMATITIS ATOPIC
     Dosage: 300 MG, QOW
     Route: 058
     Dates: start: 202002

REACTIONS (9)
  - Alopecia [Unknown]
  - Injection site erythema [Recovered/Resolved]
  - Injection site pain [Unknown]
  - Bronchitis [Unknown]
  - Rash [Unknown]
  - Impaired work ability [Recovering/Resolving]
  - Influenza [Unknown]
  - Tongue biting [Recovering/Resolving]
  - Inappropriate schedule of product administration [Unknown]

NARRATIVE: CASE EVENT DATE: 20200601
